FAERS Safety Report 4623966-3 (Version None)
Quarter: 2005Q1

REPORT INFORMATION
  Report Type: 
  Country: None (occurrence: None)
  Receive Date: 20050331
  Receipt Date: 20050317
  Transmission Date: 20050727
  Serious: Yes (Hospitalization)
  Sender: FDA-Public Use
  Company Number: JP-ROCHE-399579

PATIENT
  Age: 52 Year
  Sex: Male

DRUGS (7)
  1. TAMIFLU [Suspect]
     Route: 048
     Dates: start: 20050312, end: 20050312
  2. TAMIFLU [Suspect]
     Route: 048
     Dates: start: 20050310, end: 20050310
  3. TAMIFLU [Suspect]
     Route: 048
     Dates: start: 20050311, end: 20050311
  4. FAROM [Concomitant]
     Indication: DRUG USE FOR UNKNOWN INDICATION
     Route: 048
     Dates: start: 20050310, end: 20050312
  5. CONFATANIN [Concomitant]
     Indication: DRUG USE FOR UNKNOWN INDICATION
     Route: 048
     Dates: start: 20050310, end: 20050312
  6. PL [Concomitant]
     Indication: DRUG USE FOR UNKNOWN INDICATION
     Route: 048
     Dates: start: 20050310, end: 20050312
  7. TOWAZUREN [Concomitant]
     Indication: DRUG USE FOR UNKNOWN INDICATION
     Route: 048
     Dates: start: 20050310, end: 20050312

REACTIONS (6)
  - BLOOD PRESSURE INCREASED [None]
  - BUNDLE BRANCH BLOCK RIGHT [None]
  - COLD SWEAT [None]
  - DIARRHOEA [None]
  - DIZZINESS [None]
  - VOMITING [None]
